FAERS Safety Report 26099693 (Version 1)
Quarter: 2025Q4

REPORT INFORMATION
  Report Type: Spontaneous
  Country: EU (occurrence: EU)
  Receive Date: 20251128
  Receipt Date: 20251128
  Transmission Date: 20260118
  Serious: Yes (Other)
  Sender: ROCHE
  Company Number: EU-ROCHE-10000440569

PATIENT
  Sex: Male

DRUGS (1)
  1. TOCILIZUMAB [Suspect]
     Active Substance: TOCILIZUMAB
     Indication: Giant cell arteritis
     Route: 065
     Dates: start: 202407

REACTIONS (8)
  - Ear pain [Unknown]
  - Giant cell arteritis [Unknown]
  - Pain in jaw [Unknown]
  - Myalgia [Unknown]
  - Hyperaesthesia [Unknown]
  - Neck pain [Unknown]
  - Dysphagia [Unknown]
  - Dysarthria [Unknown]
